FAERS Safety Report 4871926-X (Version None)
Quarter: 2005Q4

REPORT INFORMATION
  Report Type: 
  Country: None (occurrence: None)
  Receive Date: 20051230
  Receipt Date: 20051219
  Transmission Date: 20060501
  Serious: Yes (Hospitalization)
  Sender: FDA-Public Use
  Company Number: 2005172070

PATIENT
  Age: 92 Year
  Sex: Female
  Weight: 57 kg

DRUGS (9)
  1. XANAX [Suspect]
     Dosage: 0.375 MG (0.25 MG 3 IN 1 D) ORAL
     Route: 048
  2. NITRIDERM TTS (GLYCERYL TRINITRATE) [Suspect]
     Indication: CARDIAC DISORDER
     Dosage: 10 MG (1 IN 1 D) TRANSDERMAL
     Route: 062
  3. ASPEGIC 1000 [Suspect]
     Indication: CARDIAC DISORDER
     Dosage: (1 IN 1D) ORAL
     Route: 048
     Dates: end: 20051004
  4. PAROXETINE HYDROCHLORIDE [Suspect]
     Indication: DEPRESSION
     Dosage: 20 MG ORAL
     Route: 048
     Dates: end: 20050928
  5. COZAAR [Suspect]
     Dosage: 50 MG (50 MG 1 IN 1 D) ORAL
     Route: 048
  6. STILNOX (ZOLPIDEM) [Suspect]
     Dosage: 10 MG (10 MG 1 IN 1D) ORAL
     Route: 048
  7. ANASTROZOLE (ANASTROZOLE) [Concomitant]
  8. MOVICOL (MACROGEL, POTASSIUM CHLORIDE, SODIUM BICARBONATE, SODIUM CHLO [Concomitant]
  9. ARTIFICIAL TEARS (ARTIFICIAL TEARS) [Concomitant]

REACTIONS (3)
  - GENERAL PHYSICAL CONDITION ABNORMAL [None]
  - HYPONATRAEMIA [None]
  - LEFT VENTRICULAR FAILURE [None]
